FAERS Safety Report 7324924-0 (Version None)
Quarter: 2011Q1

REPORT INFORMATION
  Report Type: 
  Country: None (occurrence: None)
  Receive Date: 20110301
  Receipt Date: 20110215
  Transmission Date: 20110831
  Serious: Yes (Death, Hospitalization)
  Sender: FDA-Public Use
  Company Number: NL-GENENTECH-314108

PATIENT
  Sex: Female

DRUGS (9)
  1. MABTHERA [Suspect]
     Dosage: UNK
     Route: 065
     Dates: start: 20090801
  2. LEUKERAN [Concomitant]
     Indication: PRODUCT USED FOR UNKNOWN INDICATION
     Dosage: UNK
  3. MABTHERA [Suspect]
     Indication: PRODUCT USED FOR UNKNOWN INDICATION
     Dosage: UNK
     Route: 065
  4. MABTHERA [Suspect]
     Dosage: UNK
     Route: 065
     Dates: start: 20081101
  5. BACTRIMEL [Suspect]
     Indication: PRODUCT USED FOR UNKNOWN INDICATION
     Dosage: UNK
     Route: 065
  6. CYCLOPHOSPHAMIDE [Concomitant]
     Indication: PRODUCT USED FOR UNKNOWN INDICATION
     Dosage: UNK
  7. PREDNISONE [Concomitant]
     Indication: PRODUCT USED FOR UNKNOWN INDICATION
     Dosage: UNK
     Dates: start: 20051001
  8. LEUKERAN [Concomitant]
     Dosage: UNK
     Dates: start: 20081101
  9. LEUKERAN [Concomitant]
     Dosage: UNK
     Dates: start: 20090801

REACTIONS (2)
  - RESPIRATORY TRACT INFECTION [None]
  - CHRONIC LYMPHOCYTIC LEUKAEMIA [None]
